FAERS Safety Report 9356991 (Version 4)
Quarter: 2014Q4

REPORT INFORMATION
  Report Type: Report from Study
  Country: CL (occurrence: CL)
  Receive Date: 20130620
  Receipt Date: 20141107
  Transmission Date: 20150529
  Serious: Yes (Other)
  Sender: FDA-Public Use
  Company Number: CL-ROCHE-1238607

PATIENT

DRUGS (1)
  1. TRASTUZUMAB EMTANSINE [Suspect]
     Active Substance: ADO-TRASTUZUMAB EMTANSINE
     Indication: PRODUCT USED FOR UNKNOWN INDICATION
     Dosage: LAST CYCLE WAS ADMINISTERED 12/AUG/2014.
     Route: 065
     Dates: start: 20130510, end: 20140903

REACTIONS (2)
  - Pulmonary embolism [Unknown]
  - Disease progression [Unknown]

NARRATIVE: CASE EVENT DATE: 20130529
